FAERS Safety Report 20718912 (Version 1)
Quarter: 2022Q2

REPORT INFORMATION
  Report Type: Spontaneous
  Country: IN (occurrence: IN)
  Receive Date: 20220418
  Receipt Date: 20220418
  Transmission Date: 20220721
  Serious: Yes (Hospitalization)
  Sender: FDA-Public Use
  Company Number: IN-STRIDES ARCOLAB LIMITED-2022SP003917

PATIENT
  Age: 44 Year
  Sex: Male

DRUGS (1)
  1. METRONIDAZOLE [Suspect]
     Active Substance: METRONIDAZOLE
     Indication: Irritable bowel syndrome
     Dosage: UNK,TABLET
     Route: 065

REACTIONS (3)
  - Intentional product misuse [Unknown]
  - Neurotoxicity [Recovered/Resolved]
  - Off label use [Unknown]
